FAERS Safety Report 6642282-1 (Version None)
Quarter: 2010Q1

REPORT INFORMATION
  Report Type: 
  Country: None (occurrence: None)
  Receive Date: 20100319
  Receipt Date: 20100309
  Transmission Date: 20100710
  Serious: Yes (Hospitalization)
  Sender: FDA-Public Use
  Company Number: US-JNJFOC-20100303624

PATIENT
  Sex: Female
  Weight: 92.99 kg

DRUGS (2)
  1. REMICADE [Suspect]
     Indication: CROHN'S DISEASE
     Route: 042
  2. COUMADIN [Concomitant]
     Indication: THROMBOSIS

REACTIONS (3)
  - ABDOMINAL PAIN UPPER [None]
  - BLOOD TEST ABNORMAL [None]
  - DRUG INEFFECTIVE [None]
